FAERS Safety Report 9778222 (Version 3)
Quarter: 2014Q2

REPORT INFORMATION
  Report Type: Report from Study
  Country: DE (occurrence: DE)
  Receive Date: 20131223
  Receipt Date: 20140527
  Transmission Date: 20141212
  Serious: Yes (Other)
  Sender: FDA-Public Use
  Company Number: DE-ROCHE-1302681

PATIENT
  Age: 63 Year
  Sex: Male
  Weight: 85.08 kg

DRUGS (3)
  1. RANIBIZUMAB [Suspect]
     Indication: VISUAL IMPAIRMENT
     Route: 050
     Dates: start: 20130327
  2. RANIBIZUMAB [Suspect]
     Indication: RETINAL VEIN OCCLUSION
     Route: 050
     Dates: start: 20131030
  3. RANIBIZUMAB [Suspect]
     Indication: AGE-RELATED MACULAR DEGENERATION
     Route: 050
     Dates: start: 20130130

REACTIONS (6)
  - Retinal vein occlusion [Unknown]
  - Retinal ischaemia [Unknown]
  - Eye haemorrhage [Unknown]
  - Macular ischaemia [Unknown]
  - Visual acuity reduced [Unknown]
  - Intraocular pressure increased [Recovered/Resolved]
